FAERS Safety Report 6661941-8 (Version None)
Quarter: 2010Q1

REPORT INFORMATION
  Report Type: 
  Country: None (occurrence: None)
  Receive Date: 20100331
  Receipt Date: 20091019
  Transmission Date: 20100710
  Serious: Yes (Life-Threatening)
  Sender: FDA-Public Use
  Company Number: US-BRISTOL-MYERS SQUIBB COMPANY-14817464

PATIENT
  Age: 58 Year
  Sex: Male
  Weight: 127 kg

DRUGS (10)
  1. ERBITUX [Suspect]
     Indication: COLORECTAL CANCER
     Route: 042
     Dates: end: 20081101
  2. BENADRYL [Concomitant]
     Indication: PREMEDICATION
  3. ASPIRIN [Concomitant]
  4. MAGNESIUM [Concomitant]
  5. PAXIL [Concomitant]
  6. ACTOS [Concomitant]
  7. PERCOCET [Concomitant]
  8. POTASSIUM [Concomitant]
  9. RESTORIL [Concomitant]
  10. NEXIUM [Concomitant]

REACTIONS (4)
  - ERYTHEMA [None]
  - PRURITUS [None]
  - PULSE ABSENT [None]
  - RESPIRATORY ARREST [None]
